FAERS Safety Report 21822957 (Version 1)
Quarter: 2023Q1

REPORT INFORMATION
  Report Type: Spontaneous
  Country: US (occurrence: US)
  Receive Date: 20230105
  Receipt Date: 20230105
  Transmission Date: 20230418
  Serious: No
  Sender: FDA-Public Use
  Company Number: US-AMNEAL PHARMACEUTICALS-2022-AMRX-02275

PATIENT
  Age: 45 Year
  Sex: Female
  Weight: 93.4 kg

DRUGS (7)
  1. ACTIVELLA [Suspect]
     Active Substance: ESTRADIOL\NORETHINDRONE ACETATE
     Indication: Uterine leiomyoma
     Dosage: 1 MG/0.5MG, 1 /DAY
     Route: 048
     Dates: start: 20200105, end: 20220612
  2. ELAGOLIX [Suspect]
     Active Substance: ELAGOLIX
     Indication: Uterine leiomyoma
     Dosage: 300MG
     Route: 048
     Dates: start: 20190308, end: 20200501
  3. GERITOL [VITAMINS NOS] [Concomitant]
     Indication: Supplementation therapy
     Route: 048
  4. LOVASTATIN [Concomitant]
     Active Substance: LOVASTATIN
     Indication: Blood cholesterol increased
     Route: 048
  5. IRON [Concomitant]
     Active Substance: IRON
     Indication: Anaemia
     Dosage: 1 TABLETS, 1 /DAY
     Route: 048
     Dates: start: 2016
  6. METFORMIN [Concomitant]
     Active Substance: METFORMIN HYDROCHLORIDE
     Indication: Type 2 diabetes mellitus
     Dosage: 2000 MILLIGRAM, 1 /DAY
     Route: 048
     Dates: start: 2016
  7. AMLODIPINE [Concomitant]
     Active Substance: AMLODIPINE BESYLATE
     Indication: Hypertension
     Dosage: 10MG, 1 /DAY
     Route: 048
     Dates: start: 202001

REACTIONS (1)
  - Bone density decreased [Not Recovered/Not Resolved]

NARRATIVE: CASE EVENT DATE: 20220601
